APPROVED DRUG PRODUCT: PANTOPRAZOLE SODIUM
Active Ingredient: PANTOPRAZOLE SODIUM
Strength: EQ 40MG BASE
Dosage Form/Route: TABLET, DELAYED RELEASE;ORAL
Application: A077056 | Product #002
Applicant: TEVA PHARMACEUTICALS USA INC
Approved: Aug 2, 2007 | RLD: No | RS: No | Type: DISCN